FAERS Safety Report 9398210 (Version 1)
Quarter: 2013Q3

REPORT INFORMATION
  Report Type: Spontaneous
  Country: IN (occurrence: IN)
  Receive Date: 20130712
  Receipt Date: 20130712
  Transmission Date: 20140515
  Serious: Yes (Death, Hospitalization)
  Sender: FDA-Public Use
  Company Number: IN-JNJFOC-20130707360

PATIENT
  Sex: Female

DRUGS (5)
  1. DOXORUBICIN [Suspect]
     Indication: BREAST CANCER
     Dosage: 4 CYCLES; ON DAY 2 OR ON DAY 1 FOR CYCLE 1; FROM CYCLE 2 TO 4; ON DAY 1
     Route: 042
  2. GEMCITABINE [Suspect]
     Indication: BREAST CANCER
     Dosage: INFUSION; FOUR CYCLES (21 DAYS); ON DAYS 1 AND 8 OR ON DAYS 2 AND 8; CYCLE 2 TO 4 ON DAY 1 AND 8
     Route: 042
  3. GEMCITABINE [Suspect]
     Indication: BREAST CANCER
     Dosage: INFUSION; FOUR CYCLES (21 DAYS); ON DAYS 1 AND 8 OR ON DAYS 2 AND 8
     Route: 042
  4. CISPLATIN [Suspect]
     Indication: BREAST CANCER
     Dosage: INTRAVENOUS INFUSION ON DAY 1
     Route: 042
  5. GRANULOCYTE COLONY STIMULATING FACTOR [Concomitant]
     Indication: SUPPORTIVE CARE
     Route: 065

REACTIONS (5)
  - Death [Fatal]
  - Neutropenic sepsis [Unknown]
  - Convulsion [Unknown]
  - Vomiting [Unknown]
  - Diarrhoea [Unknown]
